FAERS Safety Report 4804110-6 (Version None)
Quarter: 2005Q4

REPORT INFORMATION
  Report Type: 
  Country: None (occurrence: None)
  Receive Date: 20051018
  Receipt Date: 20051018
  Transmission Date: 20060501
  Serious: Yes (Life-Threatening, Hospitalization, Disabling)
  Sender: FDA-Public Use
  Company Number: None

PATIENT
  Age: 5 Year
  Sex: Male
  Weight: 21 kg

DRUGS (1)
  1. STRATTERA [Suspect]
     Dosage: ORAL, QUANTITY TAKEN UNKNOWN
     Route: 048

REACTIONS (9)
  - ACCIDENTAL DRUG INTAKE BY CHILD [None]
  - CARDIO-RESPIRATORY ARREST [None]
  - CONVULSION [None]
  - HYPOXIC ENCEPHALOPATHY [None]
  - MUSCULOSKELETAL STIFFNESS [None]
  - RESPIRATORY FAILURE [None]
  - STATUS EPILEPTICUS [None]
  - TREMOR [None]
  - VENTRICULAR TACHYCARDIA [None]
